FAERS Safety Report 8200128-4 (Version None)
Quarter: 2012Q1

REPORT INFORMATION
  Report Type: 
  Country: None (occurrence: None)
  Receive Date: 20120306
  Receipt Date: 20120223
  Transmission Date: 20120608
  Serious: Yes (Other)
  Sender: FDA-Public Use
  Company Number: 2012SP010350

PATIENT
  Sex: Female

DRUGS (4)
  1. INSULIN [Concomitant]
  2. PEG-INTRON [Suspect]
     Indication: HEPATITIS C
     Dates: start: 20120126
  3. VICTRELIS [Suspect]
     Indication: HEPATITIS C
     Dates: start: 20120223
  4. RIBAVIRIN [Suspect]
     Indication: HEPATITIS C
     Dates: start: 20120126

REACTIONS (12)
  - NAUSEA [None]
  - ABDOMINAL PAIN UPPER [None]
  - VOMITING [None]
  - UNEVALUABLE EVENT [None]
  - HYPERHIDROSIS [None]
  - PAIN [None]
  - INCREASED APPETITE [None]
  - WHITE BLOOD CELL COUNT DECREASED [None]
  - DECREASED APPETITE [None]
  - FATIGUE [None]
  - BLOOD POTASSIUM DECREASED [None]
  - MALAISE [None]
